FAERS Safety Report 17452970 (Version 3)
Quarter: 2021Q2

REPORT INFORMATION
  Report Type: Spontaneous
  Country: GB (occurrence: GB)
  Receive Date: 20200224
  Receipt Date: 20210427
  Transmission Date: 20210716
  Serious: Yes (Congenital Anomaly, Other)
  Sender: FDA-Public Use
  Company Number: GB-MYLANLABS-2020M1019000

PATIENT

DRUGS (1)
  1. ISOTRETINOIN. [Suspect]
     Active Substance: ISOTRETINOIN
     Indication: ACNE
     Dosage: 50 MILLIGRAM
     Route: 064
     Dates: start: 20190529

REACTIONS (2)
  - Foetal exposure during pregnancy [Recovered/Resolved]
  - Teratogenicity [Not Recovered/Not Resolved]

NARRATIVE: CASE EVENT DATE: 201911
